FAERS Safety Report 10728091 (Version 6)
Quarter: 2015Q4

REPORT INFORMATION
  Report Type: Report from Study
  Country: US (occurrence: US)
  Receive Date: 20150121
  Receipt Date: 20151102
  Transmission Date: 20160304
  Serious: Yes (Hospitalization)
  Sender: FDA-Public Use
  Company Number: US-ACTELION-A-US2015-111342

PATIENT
  Age: 63 Year
  Sex: Female

DRUGS (2)
  1. SILDENAFIL. [Concomitant]
     Active Substance: SILDENAFIL
  2. TRACLEER [Suspect]
     Active Substance: BOSENTAN
     Indication: PULMONARY ARTERIAL HYPERTENSION
     Dosage: UNK
     Route: 048
     Dates: start: 20080424

REACTIONS (12)
  - Staphylococcal sepsis [Unknown]
  - Ileus [Unknown]
  - Cardioversion [Unknown]
  - Limb operation [Not Recovered/Not Resolved]
  - Impaired healing [Not Recovered/Not Resolved]
  - Bacterial infection [Not Recovered/Not Resolved]
  - Decubitus ulcer [Not Recovered/Not Resolved]
  - Dyspnoea [Unknown]
  - Osteonecrosis [Unknown]
  - Debridement [Not Recovered/Not Resolved]
  - Leg amputation [Recovering/Resolving]
  - Atrial fibrillation [Unknown]

NARRATIVE: CASE EVENT DATE: 20141216
